FAERS Safety Report 15365063 (Version 22)
Quarter: 2025Q3

REPORT INFORMATION
  Report Type: Report from Study
  Country: EU (occurrence: EU)
  Receive Date: 20180910
  Receipt Date: 20250904
  Transmission Date: 20251021
  Serious: Yes (Hospitalization, Other)
  Sender: ROCHE
  Company Number: EU-ROCHE-2110206

PATIENT
  Age: 28 Year
  Sex: Female
  Weight: 62.0 kg

DRUGS (22)
  1. OCREVUS [Suspect]
     Active Substance: OCRELIZUMAB
     Indication: Relapsing-remitting multiple sclerosis
     Route: 042
     Dates: start: 20180315, end: 20180315
  2. OCREVUS [Suspect]
     Active Substance: OCRELIZUMAB
     Route: 042
     Dates: start: 20180329, end: 20180329
  3. OCREVUS [Suspect]
     Active Substance: OCRELIZUMAB
     Route: 042
     Dates: start: 20180906
  4. OCREVUS [Suspect]
     Active Substance: OCRELIZUMAB
     Route: 042
     Dates: start: 20190924
  5. OCREVUS [Suspect]
     Active Substance: OCRELIZUMAB
     Route: 042
     Dates: start: 20180315
  6. OCREVUS [Suspect]
     Active Substance: OCRELIZUMAB
     Route: 042
  7. OCREVUS [Suspect]
     Active Substance: OCRELIZUMAB
     Route: 058
  8. CORTISONE [Suspect]
     Active Substance: CORTISONE
     Indication: Premedication
     Route: 065
  9. LAMOTRIGINE [Concomitant]
     Active Substance: LAMOTRIGINE
     Indication: Epilepsy
     Dosage: 1-0-1
  10. LAMOTRIGINE [Concomitant]
     Active Substance: LAMOTRIGINE
     Dosage: 175-0-200 MG
  11. LAMOTRIGINE [Concomitant]
     Active Substance: LAMOTRIGINE
     Route: 046
  12. LAMOTRIGINE [Concomitant]
     Active Substance: LAMOTRIGINE
  13. LAMOTRIGINE [Concomitant]
     Active Substance: LAMOTRIGINE
     Dosage: 1-0-1
  14. CHOLECALCIFEROL [Concomitant]
     Active Substance: CHOLECALCIFEROL
  15. PANTOPRAZOLE SODIUM [Concomitant]
     Active Substance: PANTOPRAZOLE SODIUM
  16. IVABRADINE [Concomitant]
     Active Substance: IVABRADINE
  17. DALFAMPRIDINE [Concomitant]
     Active Substance: DALFAMPRIDINE
  18. TOLPERISONE [Concomitant]
     Active Substance: TOLPERISONE
  19. GABAPENTIN [Concomitant]
     Active Substance: GABAPENTIN
  20. VENLAFAXINE HYDROCHLORIDE [Concomitant]
     Active Substance: VENLAFAXINE HYDROCHLORIDE
  21. BRIVARACETAM [Concomitant]
     Active Substance: BRIVARACETAM
     Dosage: 1-0-1
  22. COMIRNATY [Concomitant]

REACTIONS (27)
  - Fatigue [Recovered/Resolved]
  - Food craving [Recovered/Resolved]
  - Middle insomnia [Recovered/Resolved]
  - Epilepsy [Recovered/Resolved]
  - Drug level fluctuating [Recovered/Resolved]
  - Band neutrophil count decreased [Recovered/Resolved]
  - Neutrophil count decreased [Recovered/Resolved]
  - Eosinophil count increased [Recovered/Resolved]
  - Basophil count decreased [Recovered/Resolved]
  - Monocyte count increased [Recovered/Resolved]
  - Myelocyte present [Unknown]
  - Blast cells present [Unknown]
  - Granulocyte count increased [Recovered/Resolved]
  - Granulocyte count decreased [Recovered/Resolved]
  - Lymphopenia [Unknown]
  - Fatigue [Recovered/Resolved]
  - Food craving [Recovered/Resolved]
  - Epilepsy [Recovered/Resolved]
  - Skin reaction [Recovered/Resolved]
  - Nasopharyngitis [Recovered/Resolved]
  - Coronavirus infection [Unknown]
  - Disturbance in attention [Recovered/Resolved]
  - Fall [Unknown]
  - Contusion [Recovered/Resolved]
  - Relapsing-remitting multiple sclerosis [Recovered/Resolved]
  - Partial seizures [Recovered/Resolved]
  - COVID-19 [Not Recovered/Not Resolved]

NARRATIVE: CASE EVENT DATE: 20180315
